FAERS Safety Report 6181228-X (Version None)
Quarter: 2009Q2

REPORT INFORMATION
  Report Type: 
  Country: None (occurrence: None)
  Receive Date: 20090506
  Receipt Date: 20090428
  Transmission Date: 20091009
  Serious: Yes (Hospitalization)
  Sender: FDA-Public Use
  Company Number: JP-BRISTOL-MYERS SQUIBB COMPANY-14610075

PATIENT
  Age: 66 Year
  Sex: Female
  Weight: 45 kg

DRUGS (6)
  1. ERBITUX [Suspect]
     Indication: COLON CANCER
     Dosage: 560 MG ON 09DEC08 TO 09DEC09; 350MG ON 16DEC08 TO STOPPED; 14APR MOST RECENT(13TH)INF;
     Route: 042
     Dates: start: 20081209
  2. IRINOTECAN HCL [Concomitant]
     Indication: COLON CANCER
     Dosage: 14APR09, 7TH AND MOST RECENT INF;
     Route: 042
     Dates: start: 20081209
  3. POLARAMINE [Concomitant]
     Indication: PREMEDICATION
     Route: 042
     Dates: start: 20081209
  4. DEXART [Concomitant]
     Indication: PREMEDICATION
     Route: 042
     Dates: start: 20081209
  5. NEU-UP [Concomitant]
     Indication: COLONY STIMULATING FACTOR THERAPY
     Route: 058
     Dates: start: 20090209, end: 20090210
  6. KYTRIL [Concomitant]
     Indication: ANTIEMETIC SUPPORTIVE CARE
     Route: 042
     Dates: start: 20081209, end: 20090414

REACTIONS (2)
  - ANOREXIA [None]
  - MALAISE [None]
